FAERS Safety Report 9093567 (Version 1)
Quarter: 2013Q1

REPORT INFORMATION
  Report Type: Spontaneous
  Country: US (occurrence: US)
  Receive Date: 20130131
  Receipt Date: 20130131
  Transmission Date: 20140127
  Serious: No
  Sender: FDA-Public Use
  Company Number: US-ABBOTT-12P-163-0994828-00

PATIENT
  Age: 29 Year
  Sex: Female
  Weight: 74.91 kg

DRUGS (7)
  1. HUMIRA [Suspect]
     Indication: CROHN^S DISEASE
     Route: 058
     Dates: start: 20121012, end: 20121012
  2. HUMIRA [Suspect]
     Route: 058
  3. UNKNOWN ANXIETY MEDICATION [Concomitant]
     Indication: ANXIETY
  4. UNKNOWN HERPES TREATMENT [Concomitant]
     Indication: HERPES SIMPLEX
  5. PREDNISONE [Concomitant]
     Indication: CROHN^S DISEASE
  6. HYDROCODONE [Concomitant]
     Indication: CROHN^S DISEASE
  7. FOLIC ACID [Concomitant]
     Indication: HYPOVITAMINOSIS

REACTIONS (2)
  - Injection site pain [Recovered/Resolved]
  - Neck pain [Recovered/Resolved]
